FAERS Safety Report 8430128-0 (Version None)
Quarter: 2012Q2

REPORT INFORMATION
  Report Type: 
  Country: None (occurrence: None)
  Receive Date: 20120612
  Receipt Date: 20120608
  Transmission Date: 20120825
  Serious: Yes (Death, Hospitalization, Other)
  Sender: FDA-Public Use
  Company Number: US-MERCK-1202USA00045

PATIENT
  Age: 76 Year
  Sex: Female
  Weight: 46 kg

DRUGS (1)
  1. FOSAMAX [Suspect]
     Indication: OSTEOPOROSIS
     Route: 048
     Dates: start: 20050101, end: 20070101

REACTIONS (23)
  - FEMUR FRACTURE [None]
  - FALL [None]
  - PULMONARY FIBROSIS [None]
  - OSTEOPENIA [None]
  - LETHARGY [None]
  - VITAMIN B12 DEFICIENCY [None]
  - URINARY TRACT INFECTION [None]
  - TRANSIENT ISCHAEMIC ATTACK [None]
  - HIP FRACTURE [None]
  - PNEUMONIA [None]
  - DECREASED APPETITE [None]
  - UTERINE LEIOMYOMA [None]
  - LUNG NEOPLASM [None]
  - ANAEMIA [None]
  - BACTERAEMIA [None]
  - HYPERGLYCAEMIA [None]
  - HERPES ZOSTER [None]
  - INSOMNIA [None]
  - DEMENTIA ALZHEIMER'S TYPE [None]
  - PULMONARY GRANULOMA [None]
  - MULTIPLE FRACTURES [None]
  - HYPERTENSION [None]
  - CONSTIPATION [None]
